FAERS Safety Report 24539093 (Version 3)
Quarter: 2025Q3

REPORT INFORMATION
  Report Type: Report from Study
  Country: US (occurrence: US)
  Receive Date: 20241023
  Receipt Date: 20250809
  Transmission Date: 20251021
  Serious: Yes (Other)
  Sender: ALEXION PHARMACEUTICALS
  Company Number: US-AstraZeneca-CH-00703547A

PATIENT
  Sex: Female

DRUGS (6)
  1. SOLIRIS [Suspect]
     Active Substance: ECULIZUMAB
     Route: 065
  2. Immunoglobulin [Concomitant]
     Route: 065
  3. VIDAZA [Concomitant]
     Active Substance: AZACITIDINE
     Route: 065
  4. Increten [Concomitant]
     Route: 065
  5. RETACRIT [Concomitant]
     Active Substance: EPOETIN ALFA-EPBX
     Route: 065
  6. PROMACTA [Concomitant]
     Active Substance: ELTROMBOPAG OLAMINE
     Route: 065

REACTIONS (3)
  - Skin cancer [Unknown]
  - Autoimmune thyroiditis [Unknown]
  - Asthenia [Unknown]
